FAERS Safety Report 7921664-1 (Version None)
Quarter: 2011Q4

REPORT INFORMATION
  Report Type: 
  Country: None (occurrence: None)
  Receive Date: 20111117
  Receipt Date: 20111111
  Transmission Date: 20120403
  Serious: Yes (Death)
  Sender: FDA-Public Use
  Company Number: US-GLAXOSMITHKLINE-A0782839A

PATIENT
  Age: 63 Year
  Sex: Female
  Weight: 104.5 kg

DRUGS (11)
  1. FOSAMAX [Concomitant]
  2. AVANDIA [Suspect]
     Indication: DIABETES MELLITUS
     Dosage: 8MG PER DAY
     Route: 048
     Dates: start: 20020301, end: 20070116
  3. LIPITOR [Concomitant]
  4. TRIAMTERENE AND HYDROCHLOROTHIAZIDE [Concomitant]
  5. NEXIUM [Concomitant]
  6. AVANDAMET [Suspect]
     Indication: DIABETES MELLITUS
     Route: 048
     Dates: start: 20021101
  7. INSULIN [Concomitant]
  8. TRICOR [Concomitant]
  9. METFORMIN HCL [Concomitant]
  10. AMARYL [Concomitant]
  11. WELCHOL [Concomitant]

REACTIONS (5)
  - CARDIOVASCULAR DISORDER [None]
  - WEIGHT INCREASED [None]
  - ARRHYTHMIA [None]
  - HYPERTENSION [None]
  - CARDIAC ARREST [None]
